FAERS Safety Report 18810418 (Version 1)
Quarter: 2021Q1

REPORT INFORMATION
  Report Type: Spontaneous
  Country: US (occurrence: US)
  Receive Date: 20210129
  Receipt Date: 20210129
  Transmission Date: 20210419
  Serious: No
  Sender: FDA-Public Use
  Company Number: US-ALKERMES INC.-ALK-2021-000434

PATIENT
  Sex: Female

DRUGS (1)
  1. VIVITROL [Suspect]
     Active Substance: NALTREXONE
     Indication: PRODUCT USED FOR UNKNOWN INDICATION
     Dosage: 380 MILLIGRAM, QMO
     Route: 030

REACTIONS (4)
  - Wrong technique in product usage process [Recovered/Resolved]
  - Injection site mass [Recovered/Resolved]
  - Injection site abscess [Recovered/Resolved]
  - Injection site reaction [Recovered/Resolved]
